FAERS Safety Report 19963431 (Version 1)
Quarter: 2021Q4

REPORT INFORMATION
  Report Type: Spontaneous
  Country: US (occurrence: US)
  Receive Date: 20211018
  Receipt Date: 20211018
  Transmission Date: 20220303
  Serious: Yes (Other)
  Sender: FDA-Public Use
  Company Number: US-JNJFOC-20211023250

PATIENT
  Sex: Female
  Weight: 63.56 kg

DRUGS (2)
  1. ZYRTEC [Suspect]
     Active Substance: CETIRIZINE HYDROCHLORIDE
     Indication: Rash
     Dosage: 1/2 PILL AND THEN A FULL ONE. ONCE FIRST TOOK A HALF AND THEN TOOK A WHOLE ONE THE NEXT DAY.
     Route: 065
  2. ZYRTEC [Suspect]
     Active Substance: CETIRIZINE HYDROCHLORIDE
     Indication: Pruritus

REACTIONS (3)
  - Urinary retention [Recovered/Resolved]
  - Product use in unapproved indication [Recovered/Resolved]
  - Somnolence [Recovered/Resolved]
